FAERS Safety Report 21343369 (Version 1)
Quarter: 2022Q3

REPORT INFORMATION
  Report Type: Report from Study
  Country: DE (occurrence: DE)
  Receive Date: 20220916
  Receipt Date: 20220916
  Transmission Date: 20221027
  Serious: Yes (Hospitalization)
  Sender: FDA-Public Use
  Company Number: DE-GLAXOSMITHKLINE-DECH2022EME027403

PATIENT
  Age: 64 Year
  Sex: Male
  Weight: 83 kg

DRUGS (8)
  1. PANTOPRAZOLE [Suspect]
     Active Substance: PANTOPRAZOLE
     Indication: Prophylaxis against gastrointestinal ulcer
     Dosage: UNIT DOSE : 40 MG
     Route: 065
  2. ACETAMINOPHEN [Suspect]
     Active Substance: ACETAMINOPHEN
     Indication: Pain
     Dosage: UNIT DOSE: 500 MG
     Route: 065
  3. ACETAMINOPHEN [Suspect]
     Active Substance: ACETAMINOPHEN
     Dosage: UNIT DOSE : 3 MG
     Route: 065
  4. LEVETIRACETAM [Suspect]
     Active Substance: LEVETIRACETAM
     Indication: Seizure
     Dosage: UNIT DOSE : 1.5 MG , THERAPY END DATE : NASK
     Dates: start: 20211013
  5. LACOSAMIDE [Suspect]
     Active Substance: LACOSAMIDE
     Indication: Seizure
     Dosage: UNIT DOSE : 3 MG
  6. LACOSAMIDE [Suspect]
     Active Substance: LACOSAMIDE
     Dosage: UNIT DOSE : 200 MG
  7. METAMIZOLE [Suspect]
     Active Substance: METAMIZOLE
     Indication: Pain
     Dosage: UNIT DOSE : 500 MG , (METAMIZOLE SODIUM)
  8. PALBOCICLIB [Suspect]
     Active Substance: PALBOCICLIB
     Indication: Glioblastoma
     Dosage: 125 MILLIGRAM DAILY; 125 MG, QD , DURATION : 6 MONTH
     Dates: start: 20211124, end: 20220523

REACTIONS (1)
  - Wound infection [Not Recovered/Not Resolved]

NARRATIVE: CASE EVENT DATE: 20220714
